FAERS Safety Report 8113451-9 (Version None)
Quarter: 2012Q1

REPORT INFORMATION
  Report Type: 
  Country: None (occurrence: None)
  Receive Date: 20120203
  Receipt Date: 20120123
  Transmission Date: 20120608
  Serious: Yes (Other)
  Sender: FDA-Public Use
  Company Number: CA-JNJFOC-20120200412

PATIENT
  Sex: Female
  Weight: 54.43 kg

DRUGS (26)
  1. CALCIUM CARBONATE [Concomitant]
  2. PREDNISOLONE [Concomitant]
     Indication: EYE DISORDER
     Dosage: BOTH EYES
     Dates: start: 20040101
  3. NAPROSYN [Concomitant]
     Dates: start: 20021223
  4. OMEPRAZOLE [Concomitant]
     Dates: start: 20040101
  5. METADOL [Concomitant]
     Dates: start: 20050726
  6. DILAUDID [Concomitant]
     Dosage: 16-24 MG HOURLY AS NEEDED
  7. FOSAMAX [Concomitant]
  8. E VITAMIN [Concomitant]
  9. GABAPENTIN [Concomitant]
     Dates: start: 20091123
  10. CYCLOCORT [Concomitant]
     Dates: start: 20050201
  11. PREDNISOLONE [Concomitant]
     Dosage: RIGHT EYE
     Dates: start: 20020301
  12. METHOTREXATE [Concomitant]
     Dosage: 2.5 7/WEEK
     Dates: start: 19990701
  13. AMCINONIDE [Concomitant]
  14. PREDNISONE TAB [Concomitant]
     Dates: start: 20101223
  15. DILANTIN [Concomitant]
     Dates: start: 20031012
  16. ASCORBIC ACID [Concomitant]
  17. FOLIC ACID [Concomitant]
  18. FERROUS GLUCONATE [Concomitant]
  19. DOCUSATE SODIUM [Concomitant]
  20. REMICADE [Suspect]
     Indication: RHEUMATOID ARTHRITIS
     Route: 042
     Dates: start: 20051101
  21. OMEGA 3-6-9 [Concomitant]
  22. BACTROBAN [Concomitant]
     Dates: start: 20050201
  23. COSOPT [Concomitant]
     Indication: INTRAOCULAR PRESSURE INCREASED
     Dosage: 2%-0.5% (AS NEEDED)
  24. ASCORBIC ACID [Concomitant]
     Dates: start: 20110601
  25. VITAMIN D [Concomitant]
  26. SENNOSIDE [Concomitant]

REACTIONS (1)
  - IRITIS [None]
